FAERS Safety Report 9290693 (Version 3)
Quarter: 2013Q4

REPORT INFORMATION
  Report Type: Spontaneous
  Country: US (occurrence: US)
  Receive Date: 20130515
  Receipt Date: 20131002
  Transmission Date: 20140711
  Serious: No
  Sender: FDA-Public Use
  Company Number: US-PFIZER INC-2013146805

PATIENT
  Age: 60 Year
  Sex: Female
  Weight: 141 kg

DRUGS (11)
  1. LEVOTHYROXINE SODIUM [Suspect]
     Indication: HYPOTHYROIDISM
     Dosage: UNK
     Dates: end: 2013
  2. SYNTHROID [Suspect]
     Indication: HYPOTHYROIDISM
     Dosage: UNK
     Dates: end: 2013
  3. LISINOPRIL [Concomitant]
     Indication: HYPERTENSION
     Dosage: UNK, 1X/DAY
  4. PERCOCET [Concomitant]
     Indication: PAIN
     Dosage: OXYCODONE HYDROCHLORIDE 10MG / PARACETAMOL 325 MG, AS NEEDED
  5. PRAVASTATIN [Concomitant]
     Indication: BLOOD CHOLESTEROL INCREASED
     Dosage: UNK
  6. VITAMIN D3 [Concomitant]
     Dosage: 8000 UNITS, 1X/DAY
  7. NUVIGIL [Concomitant]
     Dosage: 250 MG, 1X/DAY
  8. ZANAFLEX [Concomitant]
     Dosage: 4 MG, UNK
  9. CELEBREX [Concomitant]
     Dosage: UNK
  10. LYRICA [Concomitant]
     Indication: FIBROMYALGIA
     Dosage: 150 MG, UNK
  11. OXYCONTIN [Concomitant]
     Indication: PAIN
     Dosage: 80 MG, AS NEEDED

REACTIONS (1)
  - Drug ineffective [Unknown]
